FAERS Safety Report 5929546-1 (Version None)
Quarter: 2008Q4

REPORT INFORMATION
  Report Type: 
  Country: None (occurrence: None)
  Receive Date: 20081024
  Receipt Date: 20081020
  Transmission Date: 20090506
  Serious: Yes (Other)
  Sender: FDA-Public Use
  Company Number: B0542412A

PATIENT
  Age: 33 Year
  Sex: Female

DRUGS (1)
  1. VENTOLIN [Suspect]
     Indication: INFLUENZA
     Route: 055
     Dates: start: 20081016

REACTIONS (9)
  - DECREASED APPETITE [None]
  - DIZZINESS [None]
  - ERYTHEMA [None]
  - LOSS OF CONSCIOUSNESS [None]
  - MOUTH ULCERATION [None]
  - PALPITATIONS [None]
  - RASH [None]
  - RASH GENERALISED [None]
  - RASH MACULAR [None]
